FAERS Safety Report 24231060 (Version 1)
Quarter: 2024Q3

REPORT INFORMATION
  Report Type: Other
  Country: BR (occurrence: BR)
  Receive Date: 20240821
  Receipt Date: 20240821
  Transmission Date: 20241017
  Serious: No
  Sender: TOLMAR
  Company Number: BR-TOLMAR, INC.-24BR051416

PATIENT
  Age: 9 Year
  Sex: Female

DRUGS (3)
  1. ELIGARD [Suspect]
     Active Substance: LEUPROLIDE ACETATE
     Indication: Precocious puberty
     Dosage: 45 MILLIGRAM, Q 6 MONTH
     Route: 058
  2. ELIGARD [Suspect]
     Active Substance: LEUPROLIDE ACETATE
     Dosage: 45 MILLIGRAM, Q 6 MONTH
     Route: 058
     Dates: start: 202312
  3. ELIGARD [Suspect]
     Active Substance: LEUPROLIDE ACETATE
     Indication: Precocious puberty
     Dosage: UNK

REACTIONS (5)
  - Injection site haematoma [Recovering/Resolving]
  - Injection site haemorrhage [Recovered/Resolved]
  - Inappropriate schedule of product administration [Recovered/Resolved]
  - Injection site pain [Recovering/Resolving]
  - Injection site mass [Recovered/Resolved]

NARRATIVE: CASE EVENT DATE: 20231201
